FAERS Safety Report 25303979 (Version 1)
Quarter: 2025Q2

REPORT INFORMATION
  Report Type: Spontaneous
  Country: ES (occurrence: ES)
  Receive Date: 20250513
  Receipt Date: 20250513
  Transmission Date: 20250716
  Serious: Yes (Hospitalization, Other)
  Sender: RANBAXY
  Company Number: ES-AEMPS-1556577

PATIENT
  Age: 42 Year
  Sex: Female

DRUGS (2)
  1. ACETAMINOPHEN [Suspect]
     Active Substance: ACETAMINOPHEN
     Indication: Product used for unknown indication
     Route: 048
     Dates: start: 20240731
  2. METAMIZOL [Suspect]
     Active Substance: METAMIZOLE SODIUM
     Indication: Suicide attempt
     Route: 048
     Dates: start: 20240731

REACTIONS (2)
  - Poisoning deliberate [Recovering/Resolving]
  - Analgesic drug level increased [Recovering/Resolving]

NARRATIVE: CASE EVENT DATE: 20240731
